FAERS Safety Report 15673766 (Version 5)
Quarter: 2022Q1

REPORT INFORMATION
  Report Type: Spontaneous
  Country: US (occurrence: US)
  Receive Date: 20181129
  Receipt Date: 20220330
  Transmission Date: 20220423
  Serious: No
  Sender: FDA-Public Use
  Company Number: US-PFIZER INC-2018396058

PATIENT
  Age: 75 Year
  Sex: Male

DRUGS (6)
  1. LYRICA [Suspect]
     Active Substance: PREGABALIN
     Indication: Epilepsy
     Dosage: 200 MG, UNK
     Route: 048
  2. LYRICA [Suspect]
     Active Substance: PREGABALIN
     Dosage: 200 MG, 3X/DAY
     Route: 048
     Dates: start: 1980
  3. VIMPAT [Concomitant]
     Active Substance: LACOSAMIDE
     Indication: Epilepsy
     Dosage: 200 MG, 2X/DAY
     Dates: start: 1985
  4. RISPERIDONE [Concomitant]
     Active Substance: RISPERIDONE
     Indication: Antidepressant therapy
     Dosage: 0.25 MG, 3X/DAY
     Dates: start: 1990
  5. DULOXETINE [Concomitant]
     Active Substance: DULOXETINE
     Indication: Antidepressant therapy
     Dosage: 30 MG, 3X/DAY
     Dates: start: 1990
  6. NAMZARIC [Concomitant]
     Active Substance: DONEPEZIL HYDROCHLORIDE\MEMANTINE HYDROCHLORIDE
     Indication: Dementia
     Dosage: 10 MG, 1X/DAY
     Dates: start: 2010

REACTIONS (1)
  - No adverse event [Unknown]

NARRATIVE: CASE EVENT DATE: 19850101
